FAERS Safety Report 14472862 (Version 2)
Quarter: 2018Q1

REPORT INFORMATION
  Report Type: Report from Study
  Country: None (occurrence: US)
  Receive Date: 20180201
  Receipt Date: 20180215
  Transmission Date: 20180509
  Serious: Yes (Hospitalization, Other)
  Sender: FDA-Public Use
  Company Number: US-ABBVIE-18K-163-2239900-00

PATIENT
  Age: 50 Year
  Sex: Male
  Weight: 110.78 kg

DRUGS (8)
  1. LISINOPRIL. [Concomitant]
     Active Substance: LISINOPRIL
     Indication: HYPERTENSION
  2. VITAMIN D [Concomitant]
     Active Substance: CHOLECALCIFEROL
     Indication: VITAMIN SUPPLEMENTATION
  3. HUMIRA [Suspect]
     Active Substance: ADALIMUMAB
     Indication: RHEUMATOID ARTHRITIS
     Route: 058
     Dates: start: 2008
  4. BYSTOLIC [Concomitant]
     Active Substance: NEBIVOLOL HYDROCHLORIDE
     Indication: HEART RATE ABNORMAL
  5. HUMIRA [Suspect]
     Active Substance: ADALIMUMAB
     Route: 058
     Dates: start: 2015, end: 201512
  6. HUMIRA [Suspect]
     Active Substance: ADALIMUMAB
     Route: 058
     Dates: start: 201612
  7. HUMIRA [Suspect]
     Active Substance: ADALIMUMAB
     Route: 058
  8. PREDNISONE. [Concomitant]
     Active Substance: PREDNISONE
     Indication: RHEUMATOID ARTHRITIS

REACTIONS (22)
  - Arthritis [Unknown]
  - Urinary tract infection fungal [Recovered/Resolved]
  - Localised infection [Unknown]
  - Procedural complication [Recovered/Resolved]
  - Wound secretion [Recovered/Resolved]
  - Rheumatoid lung [Unknown]
  - Drug resistance [Unknown]
  - Arthralgia [Unknown]
  - Inflammation [Recovered/Resolved]
  - Wound infection staphylococcal [Recovered/Resolved]
  - Wound dehiscence [Recovered/Resolved]
  - Ureteric obstruction [Recovered/Resolved]
  - Nephrolithiasis [Recovered/Resolved]
  - Respiratory tract congestion [Unknown]
  - Septic shock [Recovered/Resolved]
  - Dyspnoea [Unknown]
  - Drug effect variable [Unknown]
  - Loss of consciousness [Recovered/Resolved]
  - Speech disorder [Recovered/Resolved]
  - Malaise [Unknown]
  - Mobility decreased [Recovered/Resolved]
  - Procedural pain [Recovered/Resolved]

NARRATIVE: CASE EVENT DATE: 201512
